FAERS Safety Report 9782930 (Version 1)
Quarter: 2013Q4

REPORT INFORMATION
  Report Type: Spontaneous
  Country: US (occurrence: US)
  Receive Date: 20131226
  Receipt Date: 20131226
  Transmission Date: 20140711
  Serious: No
  Sender: FDA-Public Use
  Company Number: US-ABBVIE-13P-163-1173848-00

PATIENT
  Age: 77 Year
  Sex: Male
  Weight: 80.81 kg

DRUGS (3)
  1. LUPRON DEPOT [Suspect]
     Indication: PROSTATE CANCER
  2. ZOMEDA [Concomitant]
     Indication: METASTASES TO BONE
  3. OMEPRAZOLE [Concomitant]
     Indication: GASTROOESOPHAGEAL REFLUX DISEASE

REACTIONS (1)
  - Inappropriate schedule of drug administration [Not Recovered/Not Resolved]
